FAERS Safety Report 13091444 (Version 1)
Quarter: 2017Q1

REPORT INFORMATION
  Report Type: Spontaneous
  Country: SA (occurrence: SA)
  Receive Date: 20170106
  Receipt Date: 20170106
  Transmission Date: 20170428
  Serious: Yes (Hospitalization, Other)
  Sender: FDA-Public Use
  Company Number: SA-AMGEN-SAUSP2016185734

PATIENT
  Age: 14 Year
  Sex: Female

DRUGS (1)
  1. MIMPARA [Suspect]
     Active Substance: CINACALCET HYDROCHLORIDE
     Indication: HYPERPARATHYROIDISM PRIMARY
     Dosage: UNK
     Route: 065

REACTIONS (12)
  - Vomiting [Recovered/Resolved]
  - Hungry bone syndrome [Recovered/Resolved]
  - Hypotension [Recovered/Resolved]
  - Abdominal pain upper [Recovered/Resolved]
  - Parathyroidectomy [Recovered/Resolved]
  - Myopathy [Recovered/Resolved]
  - Hypocalcaemia [Recovered/Resolved]
  - Blood alkaline phosphatase increased [Unknown]
  - Off label use [Unknown]
  - Heart rate increased [Recovered/Resolved]
  - Hypercalcaemia [Recovered/Resolved]
  - Blood parathyroid hormone increased [Unknown]
